FAERS Safety Report 26136747 (Version 1)
Quarter: 2025Q4

REPORT INFORMATION
  Report Type: Spontaneous
  Country: US (occurrence: None)
  Receive Date: 20251209
  Receipt Date: 20251209
  Transmission Date: 20260118
  Serious: Yes (Disabling)
  Sender: FDA-CTU
  Company Number: None

PATIENT
  Age: 72 Year
  Sex: Female
  Weight: 72 kg

DRUGS (2)
  1. LEVOFLOXACIN [Suspect]
     Active Substance: LEVOFLOXACIN
     Indication: Sinusitis
     Dosage: 1 TABLET DAILY ORAL
     Route: 048
  2. MINERALS\VITAMINS [Concomitant]
     Active Substance: MINERALS\VITAMINS

REACTIONS (9)
  - Arthralgia [None]
  - Decreased activity [None]
  - Back pain [None]
  - Neck pain [None]
  - Arthralgia [None]
  - Tendon pain [None]
  - Overdose [None]
  - Dyspepsia [None]
  - Product communication issue [None]

NARRATIVE: CASE EVENT DATE: 20250411
